FAERS Safety Report 17545996 (Version 1)
Quarter: 2020Q1

REPORT INFORMATION
  Report Type: Spontaneous
  Country: GB (occurrence: GB)
  Receive Date: 20200316
  Receipt Date: 20200316
  Transmission Date: 20200409
  Serious: Yes (Death)
  Sender: FDA-Public Use
  Company Number: NVSC2020GB071509

PATIENT

DRUGS (5)
  1. CYCLOPHOSPHAMIDE. [Suspect]
     Active Substance: CYCLOPHOSPHAMIDE
     Indication: NON-HODGKIN^S LYMPHOMA UNSPECIFIED HISTOLOGY AGGRESSIVE
     Dosage: 400 MG/M2 ON DAY 1 OF EACH CYCLE
     Route: 065
     Dates: start: 2012, end: 2017
  2. DOXORUBICIN [Suspect]
     Active Substance: DOXORUBICIN
     Indication: NON-HODGKIN^S LYMPHOMA UNSPECIFIED HISTOLOGY AGGRESSIVE
     Dosage: 25 MG/M2 ON DAY 1 OF EACH CYCLE
     Route: 065
     Dates: start: 2012, end: 2017
  3. VINCRISTINE [Suspect]
     Active Substance: VINCRISTINE
     Indication: NON-HODGKIN^S LYMPHOMA UNSPECIFIED HISTOLOGY AGGRESSIVE
     Dosage: 1 MG/M2 ON DAY 1 OF EACH CYCLE
     Route: 065
     Dates: start: 2012, end: 2017
  4. RITUXIMAB. [Suspect]
     Active Substance: RITUXIMAB
     Indication: NON-HODGKIN^S LYMPHOMA UNSPECIFIED HISTOLOGY AGGRESSIVE
     Dosage: 375 MG/M2 ON DAY 1 OF EACH CYCLE
     Route: 065
     Dates: start: 2012, end: 2017
  5. PREDNISOLONE. [Suspect]
     Active Substance: PREDNISOLONE
     Indication: NON-HODGKIN^S LYMPHOMA UNSPECIFIED HISTOLOGY AGGRESSIVE
     Dosage: 40 MG/M2 ON DAYS 1-5
     Route: 065
     Dates: start: 2012, end: 2017

REACTIONS (1)
  - Gastrointestinal haemorrhage [Fatal]
